FAERS Safety Report 14354237 (Version 1)
Quarter: 2018Q1

REPORT INFORMATION
  Report Type: Report from Study
  Country: NL (occurrence: NL)
  Receive Date: 20180105
  Receipt Date: 20180105
  Transmission Date: 20180509
  Serious: Yes (Hospitalization)
  Sender: FDA-Public Use
  Company Number: NL-ROCHE-2047512

PATIENT
  Age: 52 Year
  Sex: Female

DRUGS (6)
  1. PERTUZUMAB. [Suspect]
     Active Substance: PERTUZUMAB
     Indication: NEOPLASM
     Dosage: MOST RECENT DOSE PRIOR TO ADVERSE EVENT: 18/DEC/2017?LOADING DOSE
     Route: 042
     Dates: start: 20171108
  2. PERTUZUMAB. [Suspect]
     Active Substance: PERTUZUMAB
     Route: 042
  3. CLINDAMYCIN. [Concomitant]
     Active Substance: CLINDAMYCIN
     Route: 048
     Dates: start: 20171225
  4. TRASTUZUMAB. [Suspect]
     Active Substance: TRASTUZUMAB
     Indication: NEOPLASM
     Dosage: MOST RECENT DOSE PRIOR TO ADVERSE EVENT: 18/DEC/2017?LOADING DOSE
     Route: 042
     Dates: start: 20171108
  5. TRASTUZUMAB. [Suspect]
     Active Substance: TRASTUZUMAB
     Route: 042
  6. CLINDAMYCIN. [Concomitant]
     Active Substance: CLINDAMYCIN
     Route: 042
     Dates: start: 20171222, end: 20171225

REACTIONS (1)
  - Subcutaneous abscess [Recovered/Resolved with Sequelae]

NARRATIVE: CASE EVENT DATE: 20171222
